FAERS Safety Report 24538867 (Version 1)
Quarter: 2024Q4

REPORT INFORMATION
  Report Type: Spontaneous
  Country: CA (occurrence: CA)
  Receive Date: 20241023
  Receipt Date: 20241023
  Transmission Date: 20250115
  Serious: Yes (Other)
  Sender: AMGEN
  Company Number: CA-AMGEN-CANSP2024207147

PATIENT
  Age: 9 Year
  Sex: Female

DRUGS (1)
  1. PROLIA [Suspect]
     Active Substance: DENOSUMAB
     Indication: Bone lesion
     Dosage: 1.7 MILLIGRAM/KILOGRAM, QMO
     Route: 058

REACTIONS (3)
  - Osteosclerosis [Unknown]
  - Bone disorder [Unknown]
  - Product use issue [Unknown]
